FAERS Safety Report 6616362-0 (Version None)
Quarter: 2010Q1

REPORT INFORMATION
  Report Type: 
  Country: None (occurrence: None)
  Receive Date: 20100305
  Receipt Date: 20100223
  Transmission Date: 20100710
  Serious: Yes (Other)
  Sender: FDA-Public Use
  Company Number: US-JNJFOC-20100206697

PATIENT
  Age: 60 Year
  Sex: Female
  Weight: 40.37 kg

DRUGS (10)
  1. EXTRA STRENGTH TYLENOL [Suspect]
     Route: 048
  2. EXTRA STRENGTH TYLENOL [Suspect]
     Indication: ARTHRITIS
     Route: 048
  3. PREVACID [Concomitant]
     Indication: GASTROOESOPHAGEAL REFLUX DISEASE
  4. IMODIUM [Concomitant]
  5. BENTYL [Concomitant]
     Indication: ABDOMINAL RIGIDITY
  6. CALCIUM [Concomitant]
  7. DONNATAL [Concomitant]
     Indication: GASTROOESOPHAGEAL REFLUX DISEASE
  8. BENADRYL [Concomitant]
  9. PROBIOTIC [Concomitant]
  10. OTHER ANTIDIARRHOEALS [Concomitant]
     Indication: DIARRHOEA

REACTIONS (8)
  - ABDOMINAL PAIN UPPER [None]
  - EPISTAXIS [None]
  - GASTRITIS [None]
  - NAUSEA [None]
  - OROPHARYNGEAL PAIN [None]
  - PRODUCT ODOUR ABNORMAL [None]
  - PRODUCT TASTE ABNORMAL [None]
  - RASH [None]
